FAERS Safety Report 6765164-3 (Version None)
Quarter: 2010Q2

REPORT INFORMATION
  Report Type: 
  Country: None (occurrence: None)
  Receive Date: 20100610
  Receipt Date: 20100610
  Transmission Date: 20101027
  Serious: No
  Sender: FDA-Public Use
  Company Number: None

PATIENT
  Sex: Female
  Weight: 96.1626 kg

DRUGS (3)
  1. PRAVASTATIN [Suspect]
     Indication: BLOOD CHOLESTEROL
     Dosage: 80 MG 1 A DAY
  2. AMLODIPINE [Suspect]
     Indication: BLOOD CHOLESTEROL INCREASED
     Dosage: 10 MG 1 A DAY
  3. HYDROCHLOROTHIAZIDE [Suspect]
     Indication: HYPERTENSION

REACTIONS (3)
  - ALOPECIA [None]
  - HAIR DISORDER [None]
  - TRICHORRHEXIS [None]
